FAERS Safety Report 14503040 (Version 1)
Quarter: 2018Q1

REPORT INFORMATION
  Report Type: Spontaneous
  Country: US (occurrence: US)
  Receive Date: 20180208
  Receipt Date: 20180208
  Transmission Date: 20180509
  Serious: No
  Sender: FDA-Public Use
  Company Number: US-PFIZER INC-2018053823

PATIENT
  Age: 66 Year
  Sex: Female

DRUGS (2)
  1. EFFEXOR XR [Suspect]
     Active Substance: VENLAFAXINE HYDROCHLORIDE
     Dosage: 225 MG, 1X/DAY [EVERY MORNING]
  2. EFFEXOR XR [Suspect]
     Active Substance: VENLAFAXINE HYDROCHLORIDE
     Dosage: 225 MG, DAILY (TWO 75 MG TABLETS IN THE MORNING AND ONE 75 MG)

REACTIONS (4)
  - Anxiety [Unknown]
  - Drug ineffective [Unknown]
  - Depressed mood [Unknown]
  - Nausea [Unknown]
